FAERS Safety Report 24282989 (Version 1)
Quarter: 2024Q3

REPORT INFORMATION
  Report Type: Spontaneous
  Country: US (occurrence: US)
  Receive Date: 20240904
  Receipt Date: 20240904
  Transmission Date: 20241017
  Serious: Yes (Other)
  Sender: DR REDDYS
  Company Number: US-DRL-USA-SPO/USA/24/0012726

PATIENT

DRUGS (8)
  1. BORTEZOMIB [Suspect]
     Active Substance: BORTEZOMIB
     Indication: POEMS syndrome
  2. BORTEZOMIB [Suspect]
     Active Substance: BORTEZOMIB
  3. DARATUMUMAB [Concomitant]
     Active Substance: DARATUMUMAB
     Indication: POEMS syndrome
  4. DARATUMUMAB [Concomitant]
     Active Substance: DARATUMUMAB
  5. DEXAMETHASONE [Concomitant]
     Active Substance: DEXAMETHASONE
     Indication: POEMS syndrome
  6. DEXAMETHASONE [Concomitant]
     Active Substance: DEXAMETHASONE
  7. CYCLOPHOSPHAMIDE [Concomitant]
     Active Substance: CYCLOPHOSPHAMIDE
     Indication: POEMS syndrome
  8. POMALIDOMIDE [Concomitant]
     Active Substance: POMALIDOMIDE
     Indication: POEMS syndrome

REACTIONS (1)
  - Drug ineffective for unapproved indication [Unknown]
